FAERS Safety Report 9689815 (Version 1)
Quarter: 2013Q4

REPORT INFORMATION
  Report Type: Other
  Country: GB (occurrence: GB)
  Receive Date: 20131115
  Receipt Date: 20131115
  Transmission Date: 20140711
  Serious: Yes (Other)
  Sender: FDA-Public Use
  Company Number: GB-BRISTOL-MYERS SQUIBB COMPANY-19800622

PATIENT
  Age: 56 Year
  Sex: Female

DRUGS (2)
  1. TRIAMCINOLONE ACE INJ [Suspect]
     Indication: OSTEOARTHRITIS
     Route: 014
  2. LIDOCAINE [Concomitant]

REACTIONS (1)
  - Joint dislocation [Unknown]
